FAERS Safety Report 11985748 (Version 2)
Quarter: 2016Q2

REPORT INFORMATION
  Report Type: Report from Study
  Country: US (occurrence: US)
  Receive Date: 20160202
  Receipt Date: 20160531
  Transmission Date: 20160815
  Serious: Yes (Hospitalization, Other)
  Sender: FDA-Public Use
  Company Number: US-ABBVIE-16K-163-1545201-00

PATIENT
  Age: 63 Year
  Sex: Female
  Weight: 99.88 kg

DRUGS (5)
  1. HUMIRA [Suspect]
     Active Substance: ADALIMUMAB
     Indication: RHEUMATOID ARTHRITIS
     Route: 058
     Dates: start: 2014
  2. BUTRANS [Concomitant]
     Active Substance: BUPRENORPHINE
     Indication: PAIN
  3. XARELTO [Suspect]
     Active Substance: RIVAROXABAN
     Indication: PULMONARY EMBOLISM
     Route: 065
  4. EPINEPHRINE. [Concomitant]
     Active Substance: EPINEPHRINE
     Indication: HYPERSENSITIVITY
  5. HUMIRA [Suspect]
     Active Substance: ADALIMUMAB
     Indication: OSTEOARTHRITIS
     Route: 058
     Dates: start: 20150422

REACTIONS (18)
  - Cardiac arrest [Recovering/Resolving]
  - Pain in extremity [Not Recovered/Not Resolved]
  - Respiratory disorder [Unknown]
  - Pneumonia [Recovering/Resolving]
  - Dizziness [Not Recovered/Not Resolved]
  - Oxygen saturation decreased [Unknown]
  - Vision blurred [Not Recovered/Not Resolved]
  - Bronchitis [Recovered/Resolved]
  - Sleep disorder [Not Recovered/Not Resolved]
  - Amnesia [Not Recovered/Not Resolved]
  - Blood glucose increased [Recovering/Resolving]
  - Fluid retention [Unknown]
  - Pulmonary embolism [Recovering/Resolving]
  - Cardiac disorder [Unknown]
  - Wrong technique in product usage process [Unknown]
  - Type 2 diabetes mellitus [Recovering/Resolving]
  - Erythema [Not Recovered/Not Resolved]
  - Arthralgia [Not Recovered/Not Resolved]

NARRATIVE: CASE EVENT DATE: 20150422
